FAERS Safety Report 8801908 (Version 1)
Quarter: 2012Q4

REPORT INFORMATION
  Report Type: 
  Country: CO (occurrence: CO)
  Receive Date: 20120921
  Receipt Date: 20120921
  Transmission Date: 20130627
  Serious: Yes (Death)
  Sender: FDA-Public Use
  Company Number: CO-PFIZER INC-2012233563

PATIENT
  Age: 70 Year
  Sex: Female

DRUGS (1)
  1. SUTENT [Suspect]
     Indication: BREAST CANCER
     Dosage: daily
     Route: 065
     Dates: start: 20081015

REACTIONS (1)
  - Death [Fatal]
